FAERS Safety Report 15452645 (Version 2)
Quarter: 2018Q4

REPORT INFORMATION
  Report Type: Report from Study
  Country: US (occurrence: US)
  Receive Date: 20181001
  Receipt Date: 20181005
  Transmission Date: 20190204
  Serious: Yes (Other)
  Sender: FDA-Public Use
  Company Number: US-JAZZ-2018-US-012426

PATIENT
  Sex: Female

DRUGS (57)
  1. TIZANIDINE HCL [Concomitant]
     Active Substance: TIZANIDINE HYDROCHLORIDE
  2. MINOCYCLINE [Concomitant]
     Active Substance: MINOCYCLINE\MINOCYCLINE HYDROCHLORIDE
  3. PANTOPRAZOLE SODIUM. [Concomitant]
     Active Substance: PANTOPRAZOLE SODIUM
  4. LEUCOVORIN CALCIUM. [Concomitant]
     Active Substance: LEUCOVORIN CALCIUM
  5. BACTRIM [Concomitant]
     Active Substance: SULFAMETHOXAZOLE\TRIMETHOPRIM
  6. ALENDRONATE SODIUM. [Concomitant]
     Active Substance: ALENDRONATE SODIUM
  7. ESTRADIOL. [Concomitant]
     Active Substance: ESTRADIOL
  8. MEDROXYPROGESTERONE [Concomitant]
     Active Substance: MEDROXYPROGESTERONE
  9. METHOTREXATE. [Concomitant]
     Active Substance: METHOTREXATE
  10. VITAMIN C [Concomitant]
     Active Substance: ASCORBIC ACID
  11. XYZAL [Concomitant]
     Active Substance: LEVOCETIRIZINE DIHYDROCHLORIDE
  12. BUDESONIDE. [Concomitant]
     Active Substance: BUDESONIDE
  13. VITAMIN D [Concomitant]
     Active Substance: CHOLECALCIFEROL
  14. PROPYLENE GLYCOL [Concomitant]
     Active Substance: PROPYLENE GLYCOL
  15. DEXAMFETAMINE [Concomitant]
     Active Substance: DEXTROAMPHETAMINE
  16. PREMARIN [Concomitant]
     Active Substance: ESTROGENS, CONJUGATED
  17. TRAMADOL HCL [Concomitant]
     Active Substance: TRAMADOL HYDROCHLORIDE
  18. STRATTERA [Concomitant]
     Active Substance: ATOMOXETINE HYDROCHLORIDE
  19. LATUDA [Concomitant]
     Active Substance: LURASIDONE HYDROCHLORIDE
  20. SINGULAIR [Concomitant]
     Active Substance: MONTELUKAST SODIUM
  21. TRAZODONE [Concomitant]
     Active Substance: TRAZODONE HYDROCHLORIDE
  22. SENNA ALEXANDRINA [Concomitant]
     Active Substance: SENNA LEAF
  23. DICYCLOVERINE [Concomitant]
     Active Substance: DICYCLOMINE HYDROCHLORIDE
  24. XYREM [Suspect]
     Active Substance: SODIUM OXYBATE
     Dosage: DOSE ADJUSTMENT
     Route: 048
     Dates: start: 201209, end: 201210
  25. MELOXICAM. [Concomitant]
     Active Substance: MELOXICAM
  26. DEXILANT [Concomitant]
     Active Substance: DEXLANSOPRAZOLE
  27. GABAPENTIN. [Concomitant]
     Active Substance: GABAPENTIN
  28. VIIBRYD [Concomitant]
     Active Substance: VILAZODONE HYDROCHLORIDE
  29. MONTELUKAST SODIUM. [Concomitant]
     Active Substance: MONTELUKAST SODIUM
  30. XYREM [Suspect]
     Active Substance: SODIUM OXYBATE
     Indication: SOMNOLENCE
     Dosage: 2.25 G, BID
     Route: 048
     Dates: start: 201209, end: 201209
  31. XYREM [Suspect]
     Active Substance: SODIUM OXYBATE
     Dosage: 4.5 G, BID
     Route: 048
     Dates: start: 201210
  32. CEFDINIR. [Concomitant]
     Active Substance: CEFDINIR
  33. ERYTHROMYCIN. [Concomitant]
     Active Substance: ERYTHROMYCIN
  34. AMOXICILLIN. [Concomitant]
     Active Substance: AMOXICILLIN
  35. FLUOXETINE HCL [Concomitant]
     Active Substance: FLUOXETINE HYDROCHLORIDE
  36. FLUTICASONE PROPIONATE. [Concomitant]
     Active Substance: FLUTICASONE PROPIONATE
  37. RESTASIS [Concomitant]
     Active Substance: CYCLOSPORINE
  38. SOMA [Concomitant]
     Active Substance: CARISOPRODOL
  39. VITAMIN B12 [Concomitant]
     Active Substance: CYANOCOBALAMIN
  40. TRIAMCINOLONE [Concomitant]
     Active Substance: TRIAMCINOLONE
  41. DEXAMETHASONE. [Concomitant]
     Active Substance: DEXAMETHASONE
  42. CLOBETASOL [Concomitant]
     Active Substance: CLOBETASOL
  43. WELLBUTRIN [Concomitant]
     Active Substance: BUPROPION HYDROCHLORIDE
  44. MUCINEX [Concomitant]
     Active Substance: GUAIFENESIN
  45. DESONIDE. [Concomitant]
     Active Substance: DESONIDE
  46. POLYETHYLENE GLYCOL [Concomitant]
     Active Substance: POLYETHYLENE GLYCOLS
  47. CAPSAICIN. [Concomitant]
     Active Substance: CAPSAICIN
  48. METRONIDAZOLE. [Concomitant]
     Active Substance: METRONIDAZOLE
  49. IPRATROPIUM [Concomitant]
     Active Substance: IPRATROPIUM
  50. HYDROXYCHLOROQUINE [Concomitant]
     Active Substance: HYDROXYCHLOROQUINE
  51. MUPIROCIN. [Concomitant]
     Active Substance: MUPIROCIN
  52. BROMOCRIPTINE [Concomitant]
     Active Substance: BROMOCRIPTINE
  53. CLONIDINE HCL [Concomitant]
     Active Substance: CLONIDINE HYDROCHLORIDE
  54. NAMENDA [Concomitant]
     Active Substance: MEMANTINE HYDROCHLORIDE
  55. FERROUS SULFATE. [Concomitant]
     Active Substance: FERROUS SULFATE
  56. FOLIC ACID. [Concomitant]
     Active Substance: FOLIC ACID
  57. FLUCONAZOLE. [Concomitant]
     Active Substance: FLUCONAZOLE

REACTIONS (1)
  - Sinusitis [Not Recovered/Not Resolved]
